FAERS Safety Report 6225376-4 (Version None)
Quarter: 2009Q2

REPORT INFORMATION
  Report Type: 
  Country: None (occurrence: None)
  Receive Date: 20090612
  Receipt Date: 20090403
  Transmission Date: 20091009
  Serious: No
  Sender: FDA-Public Use
  Company Number: US-ABBOTT-09P-163-0568612-00

PATIENT
  Sex: Female
  Weight: 63.56 kg

DRUGS (4)
  1. HUMIRA [Suspect]
     Indication: PSORIASIS
     Route: 058
     Dates: start: 20090403
  2. UNKNOWN ESTROGEN INJENTION [Concomitant]
     Indication: DRUG USE FOR UNKNOWN INDICATION
  3. PENICILLIN [Concomitant]
     Indication: PROPHYLAXIS
  4. PENICILLIN [Concomitant]
     Indication: TOOTH INFECTION

REACTIONS (3)
  - ALOPECIA [None]
  - HEADACHE [None]
  - INJECTION SITE PAIN [None]
